FAERS Safety Report 19874808 (Version 1)
Quarter: 2021Q3

REPORT INFORMATION
  Report Type: Spontaneous
  Country: FR (occurrence: FR)
  Receive Date: 20210923
  Receipt Date: 20210923
  Transmission Date: 20211014
  Serious: Yes (Other)
  Sender: FDA-Public Use
  Company Number: FR-ROCHE-2915763

PATIENT
  Age: 53 Year
  Sex: Female

DRUGS (3)
  1. L?HISTIDINE [Concomitant]
     Indication: PRODUCT USED FOR UNKNOWN INDICATION
     Route: 065
  2. POLYSORBATE 20. [Concomitant]
     Active Substance: POLYSORBATE 20
     Indication: PRODUCT USED FOR UNKNOWN INDICATION
     Route: 065
  3. XOLAIR [Suspect]
     Active Substance: OMALIZUMAB
     Indication: URTICARIA CHRONIC
     Route: 065
     Dates: start: 201908

REACTIONS (1)
  - Secondary hypothyroidism [Not Recovered/Not Resolved]

NARRATIVE: CASE EVENT DATE: 202105
